FAERS Safety Report 7770873-3 (Version None)
Quarter: 2011Q3

REPORT INFORMATION
  Report Type: 
  Country: None (occurrence: None)
  Receive Date: 20110922
  Receipt Date: 20110711
  Transmission Date: 20111222
  Serious: Yes (Other)
  Sender: FDA-Public Use
  Company Number: US-ASTRAZENECA-2011SE41665

PATIENT
  Age: 62 Year
  Sex: Male

DRUGS (4)
  1. SEROQUEL [Suspect]
     Route: 048
  2. LEXAPRO [Suspect]
     Route: 065
  3. SEROQUEL [Suspect]
     Route: 048
  4. ATIVAN [Suspect]
     Route: 065

REACTIONS (1)
  - CONVULSION [None]
